FAERS Safety Report 5736365-8 (Version None)
Quarter: 2008Q2

REPORT INFORMATION
  Report Type: 
  Country: None (occurrence: None)
  Receive Date: 20080509
  Receipt Date: 20080509
  Transmission Date: 20081010
  Serious: No
  Sender: FDA-Public Use
  Company Number: None

PATIENT
  Age: 55 Year
  Sex: Male
  Weight: 70.3075 kg

DRUGS (4)
  1. CREST PRO-HEALTH ORAL RINSE   PROCTER + GAMBLE [Suspect]
     Indication: BREATH ODOUR
     Dosage: 20 ML TWICE A DAY PO
     Route: 048
     Dates: start: 20070401, end: 20080507
  2. CREST PRO-HEALTH ORAL RINSE   PROCTER + GAMBLE [Suspect]
     Indication: DENTAL PLAQUE
     Dosage: 20 ML TWICE A DAY PO
     Route: 048
     Dates: start: 20070401, end: 20080507
  3. CREST PRO-HEALTH ORAL RINSE   PROCTER + GAMBLE [Suspect]
     Indication: GINGIVITIS
     Dosage: 20 ML TWICE A DAY PO
     Route: 048
     Dates: start: 20070401, end: 20080507
  4. CREST PRO-HEALTH ORAL RINSE   PROCTER + GAMBLE [Suspect]
     Indication: PROPHYLAXIS
     Dosage: 20 ML TWICE A DAY PO
     Route: 048
     Dates: start: 20070401, end: 20080507

REACTIONS (1)
  - TOOTH DISCOLOURATION [None]
